FAERS Safety Report 10084119 (Version 1)
Quarter: 2014Q2

REPORT INFORMATION
  Report Type: Spontaneous
  Country: JP (occurrence: JP)
  Receive Date: 20140417
  Receipt Date: 20140417
  Transmission Date: 20141212
  Serious: Yes (Death)
  Sender: FDA-Public Use
  Company Number: JP-NOVOPROD-406501

PATIENT
  Age: 84 Year
  Sex: Male
  Weight: 55 kg

DRUGS (2)
  1. NOVOSEVEN HI [Suspect]
     Indication: ACQUIRED HAEMOPHILIA
     Dosage: 5 MG, BID
     Route: 042
     Dates: start: 201403
  2. NOVOSEVEN HI [Suspect]
     Dosage: 5 MG, QID
     Route: 042
     Dates: start: 20140402, end: 20140402

REACTIONS (1)
  - Cardiac failure [Fatal]
